FAERS Safety Report 26152419 (Version 1)
Quarter: 2025Q4

REPORT INFORMATION
  Report Type: Spontaneous
  Country: US (occurrence: US)
  Receive Date: 20251214
  Receipt Date: 20251214
  Transmission Date: 20260117
  Serious: No
  Sender: SANOFI AVENTIS
  Company Number: US-SA-2025SA370254

PATIENT
  Age: 16 Year
  Sex: Female

DRUGS (5)
  1. DUPIXENT [Suspect]
     Active Substance: DUPILUMAB
     Indication: Dermatitis atopic
     Dosage: 300 MG, OTHER
     Route: 058
     Dates: start: 20241104
  2. VITAMINS [Concomitant]
     Active Substance: VITAMINS
  3. ALBUTEROL [Concomitant]
     Active Substance: ALBUTEROL
  4. PROTOPIC [Concomitant]
     Active Substance: TACROLIMUS
  5. ZORYVE [Concomitant]
     Active Substance: ROFLUMILAST

REACTIONS (1)
  - Fear of injection [Unknown]

NARRATIVE: CASE EVENT DATE: 20251205
